FAERS Safety Report 23217681 (Version 1)
Quarter: 2023Q4

REPORT INFORMATION
  Report Type: Report from Study
  Country: US (occurrence: None)
  Receive Date: 20231122
  Receipt Date: 20231122
  Transmission Date: 20240109
  Serious: Yes (Other)
  Sender: FDA-Public Use
  Company Number: 2023A261226

PATIENT

DRUGS (2)
  1. BREZTRI [Suspect]
     Active Substance: BUDESONIDE\FORMOTEROL\GLYCOPYRROLATE
  2. LEXALT [Concomitant]

REACTIONS (4)
  - Brain hypoxia [Unknown]
  - Oxygen saturation decreased [Unknown]
  - Respiration abnormal [Unknown]
  - Decreased activity [Unknown]
